FAERS Safety Report 9518232 (Version 1)
Quarter: 2013Q3

REPORT INFORMATION
  Report Type: Spontaneous
  Country: US (occurrence: None)
  Receive Date: 20130910
  Receipt Date: 20130910
  Transmission Date: 20140515
  Serious: No
  Sender: FDA-Public Use
  Company Number: None

PATIENT
  Age: 77 Year
  Sex: Male
  Weight: 85.28 kg

DRUGS (9)
  1. HYDROCODONE/ACETAMINOPHEN [Suspect]
     Indication: KNEE ARTHROPLASTY
     Dosage: 1 PILL FOR PAIN
     Route: 048
     Dates: start: 20130703, end: 20130718
  2. NORVASC [Concomitant]
  3. BENAZEPRIL [Concomitant]
  4. METOPOROL [Concomitant]
  5. MULTAQ [Concomitant]
  6. TERAZOSIN [Concomitant]
  7. SIMVASTATIN [Concomitant]
  8. WARFARIN [Concomitant]
  9. MULTI VITAMIN DAILY [Concomitant]

REACTIONS (3)
  - Abdominal pain upper [None]
  - Diarrhoea [None]
  - Nausea [None]
